FAERS Safety Report 8249860 (Version 4)
Quarter: 2012Q4

REPORT INFORMATION
  Report Type: 
  Country: US (occurrence: US)
  Receive Date: 20111117
  Receipt Date: 20120905
  Transmission Date: 20130627
  Serious: Yes (Other)
  Sender: FDA-Public Use
  Company Number: US-ASTRAZENECA-2011SE65651

PATIENT
  Age: 75 Year
  Sex: Female
  Weight: 53.1 kg

DRUGS (1)
  1. NEXIUM [Suspect]
     Indication: GASTROOESOPHAGEAL REFLUX DISEASE
     Route: 048
     Dates: start: 2008

REACTIONS (9)
  - Cataract [Unknown]
  - Speech disorder [Unknown]
  - Laryngitis [Unknown]
  - Visual impairment [Unknown]
  - Dysgraphia [Unknown]
  - Musculoskeletal discomfort [Unknown]
  - Gastrooesophageal reflux disease [Unknown]
  - Off label use [Unknown]
  - Drug dose omission [Unknown]
